FAERS Safety Report 5094000-9 (Version None)
Quarter: 2006Q3

REPORT INFORMATION
  Report Type: 
  Country: None (occurrence: None)
  Receive Date: 20060728
  Receipt Date: 20060620
  Transmission Date: 20061208
  Serious: No
  Sender: FDA-Public Use
  Company Number: 254284

PATIENT
  Age: 64 Year
  Sex: Female

DRUGS (5)
  1. LEVEMIR [Suspect]
     Indication: INSULIN-REQUIRING TYPE II DIABETES MELLITUS
     Dosage: 15 IU, QD, SUBCUTANEOUS
     Route: 058
     Dates: start: 20060616
  2. GLYBURIDE W/METFORMIN (METFORMIN, GLIBENCLAMIDE) [Concomitant]
  3. NORVASC [Concomitant]
  4. BENICAR [Concomitant]
  5. RHINOCORT [Concomitant]

REACTIONS (1)
  - FATIGUE [None]
